FAERS Safety Report 23156752 (Version 1)
Quarter: 2023Q4

REPORT INFORMATION
  Report Type: Report from Study
  Country: GR (occurrence: GR)
  Receive Date: 20231108
  Receipt Date: 20231108
  Transmission Date: 20240110
  Serious: Yes (Death, Other)
  Sender: FDA-Public Use
  Company Number: GR-ABBVIE-5485429

PATIENT
  Sex: Male

DRUGS (2)
  1. CARBIDOPA\LEVODOPA [Suspect]
     Active Substance: CARBIDOPA\LEVODOPA
     Indication: Parkinson^s disease
     Dosage: MORNING DOSE: 5.0ML; CONTINUOUS RATE: 2.8ML/H; EXTRA DOSE: 1.5ML
     Route: 050
     Dates: start: 20170114
  2. CARBIDOPA\LEVODOPA [Suspect]
     Active Substance: CARBIDOPA\LEVODOPA

REACTIONS (2)
  - Cardiac arrest [Fatal]
  - Unevaluable event [Not Recovered/Not Resolved]
